FAERS Safety Report 7256217-4 (Version None)
Quarter: 2011Q1

REPORT INFORMATION
  Report Type: 
  Country: None (occurrence: None)
  Receive Date: 20110129
  Receipt Date: 20100519
  Transmission Date: 20110831
  Serious: No
  Sender: FDA-Public Use
  Company Number: US-ABBOTT-10P-163-0645858-00

PATIENT
  Age: 33 Year
  Sex: Female

DRUGS (3)
  1. PENTASA [Concomitant]
     Indication: CROHN'S DISEASE
  2. MERCAPTOPURINE [Concomitant]
     Indication: CROHN'S DISEASE
  3. HUMIRA [Suspect]
     Indication: CROHN'S DISEASE
     Dates: start: 20100508

REACTIONS (4)
  - INJECTION SITE ERYTHEMA [None]
  - RHINORRHOEA [None]
  - INJECTION SITE SWELLING [None]
  - COUGH [None]
